FAERS Safety Report 14223969 (Version 1)
Quarter: 2017Q4

REPORT INFORMATION
  Report Type: Spontaneous
  Country: US (occurrence: US)
  Receive Date: 20171122
  Receipt Date: 20171122
  Transmission Date: 20180321
  Serious: No
  Sender: FDA-Public Use
  Company Number: None

PATIENT
  Age: 9 Year
  Sex: Male
  Weight: 30.15 kg

DRUGS (1)
  1. METHYLPHENIDATE ER [Suspect]
     Active Substance: METHYLPHENIDATE
     Indication: ATTENTION DEFICIT/HYPERACTIVITY DISORDER
     Route: 048
     Dates: start: 20171010, end: 20171101

REACTIONS (6)
  - Abnormal behaviour [None]
  - Emotional disorder [None]
  - Psychomotor hyperactivity [None]
  - Drug ineffective [None]
  - Disturbance in attention [None]
  - Product substitution issue [None]

NARRATIVE: CASE EVENT DATE: 20171119
